FAERS Safety Report 4659956-4 (Version None)
Quarter: 2005Q2

REPORT INFORMATION
  Report Type: 
  Country: None (occurrence: None)
  Receive Date: 20050502
  Receipt Date: 20050218
  Transmission Date: 20051028
  Serious: Yes (Hospitalization)
  Sender: FDA-Public Use
  Company Number: US_0411107659

PATIENT
  Sex: Male
  Weight: 145 kg

DRUGS (3)
  1. ZYPREXA [Suspect]
     Dosage: 20 MG/L DAY
     Dates: start: 20010101
  2. SYMBYAX [Suspect]
     Dates: start: 20010101
  3. AMARYL [Concomitant]

REACTIONS (2)
  - DIABETES MELLITUS [None]
  - EMOTIONAL DISTRESS [None]
